FAERS Safety Report 7823861-2 (Version None)
Quarter: 2011Q4

REPORT INFORMATION
  Report Type: 
  Country: None (occurrence: None)
  Receive Date: 20111014
  Receipt Date: 20111005
  Transmission Date: 20120403
  Serious: Yes (Death, Congenital Anomaly, Other)
  Sender: FDA-Public Use
  Company Number: GER/UKI/11/0021451

PATIENT

DRUGS (3)
  1. AZATHIOPRINE [Suspect]
     Indication: PRODUCT USED FOR UNKNOWN INDICATION
     Dosage: 1 IN 1 D, TRANSPLACENTAL
     Route: 064
  2. PROGRAF [Suspect]
     Indication: PRODUCT USED FOR UNKNOWN INDICATION
     Dosage: 10 MG, 1 D, TRANSPLACENTAL
     Route: 064
  3. SERTRALINE HYDROCHLORIDE [Suspect]
     Indication: PRODUCT USED FOR UNKNOWN INDICATION
     Dosage: 100 MG, 1 IN 1 D, TRANSPLACENTAL
     Route: 064

REACTIONS (6)
  - VENTRICULAR SEPTAL DEFECT [None]
  - MITRAL VALVE ATRESIA [None]
  - HYPOPLASTIC LEFT HEART SYNDROME [None]
  - HEART DISEASE CONGENITAL [None]
  - DOUBLE OUTLET RIGHT VENTRICLE [None]
  - MATERNAL DRUGS AFFECTING FOETUS [None]
